FAERS Safety Report 6354211-9 (Version None)
Quarter: 2009Q3

REPORT INFORMATION
  Report Type: 
  Country: None (occurrence: None)
  Receive Date: 20090914
  Receipt Date: 20090902
  Transmission Date: 20100115
  Serious: Yes (Other)
  Sender: FDA-Public Use
  Company Number: PHHY2009CN37924

PATIENT
  Age: 23 Year
  Sex: Male

DRUGS (2)
  1. SEBIVO [Suspect]
     Indication: HEPATITIS B POSITIVE
     Dosage: 600 MG PER DAY
     Route: 048
     Dates: start: 20070901, end: 20080101
  2. INTERFERON ALFA-2B [Concomitant]
     Indication: HEPATITIS B POSITIVE

REACTIONS (3)
  - GAIT DISTURBANCE [None]
  - MYALGIA [None]
  - OEDEMA PERIPHERAL [None]
